FAERS Safety Report 22167345 (Version 2)
Quarter: 2023Q4

REPORT INFORMATION
  Report Type: Spontaneous
  Country: FR (occurrence: None)
  Receive Date: 20230403
  Receipt Date: 20231110
  Transmission Date: 20240110
  Serious: Yes (Other)
  Sender: FDA-Public Use
  Company Number: 2023A067670

PATIENT
  Age: 53 Year
  Sex: Male

DRUGS (13)
  1. ESOMEPRAZOLE [Suspect]
     Active Substance: ESOMEPRAZOLE
     Indication: Prophylaxis against gastrointestinal ulcer
     Dosage: UNSPECIFIED DOSAGE
     Route: 048
     Dates: start: 20221214, end: 20221220
  2. PROPOFOL LIPURO [Suspect]
     Active Substance: PROPOFOL
     Indication: Metabolic surgery
     Route: 042
     Dates: start: 20221214, end: 20221214
  3. LIDOCAINE [Suspect]
     Active Substance: LIDOCAINE
     Indication: Metabolic surgery
     Route: 042
     Dates: start: 20221214, end: 20221214
  4. MORPHINE [Suspect]
     Active Substance: MORPHINE
     Indication: Procedural pain
     Route: 042
     Dates: start: 20221214, end: 20221214
  5. CEFTRIAXONE SODIUM [Suspect]
     Active Substance: CEFTRIAXONE SODIUM
     Indication: Metabolic surgery
     Dosage: 4 G FREQUENCY - UNKNOWN
     Route: 042
     Dates: start: 20221214, end: 20221214
  6. KETOPROFEN [Suspect]
     Active Substance: KETOPROFEN
     Indication: Metabolic surgery
     Route: 048
     Dates: start: 20221214, end: 20221220
  7. CISATRACURIUM [Suspect]
     Active Substance: CISATRACURIUM
     Indication: Metabolic surgery
     Route: 042
     Dates: start: 20221214, end: 20221214
  8. PHLOROGLUCINOL [Suspect]
     Active Substance: PHLOROGLUCINOL
     Indication: Metabolic surgery
     Route: 048
     Dates: start: 20221214, end: 20221220
  9. GENTAMICIN [Suspect]
     Active Substance: GENTAMICIN
     Indication: Metabolic surgery
     Route: 042
     Dates: start: 20221214, end: 20221214
  10. ACUPAN [Suspect]
     Active Substance: NEFOPAM HYDROCHLORIDE
     Indication: Procedural pain
     Route: 042
     Dates: start: 20221214, end: 20221214
  11. DEXAMETHASONE [Suspect]
     Active Substance: DEXAMETHASONE
     Indication: Metabolic surgery
     Route: 042
     Dates: start: 20221214, end: 20221214
  12. LOVENOX [Suspect]
     Active Substance: ENOXAPARIN SODIUM
     Indication: Thrombosis prophylaxis
     Dosage: 4000 IU, FREQUENCY - UNKNOWN
     Route: 058
     Dates: start: 20221214, end: 20221214
  13. EPHEDRINE HYDROCHLORIDE [Suspect]
     Active Substance: EPHEDRINE HYDROCHLORIDE
     Indication: Metabolic surgery
     Route: 042
     Dates: start: 20221214, end: 20221214

REACTIONS (2)
  - Toxic skin eruption [Recovered/Resolved]
  - Eosinophilia [Recovered/Resolved]

NARRATIVE: CASE EVENT DATE: 20221214
